FAERS Safety Report 9609334 (Version 2)
Quarter: 2013Q4

REPORT INFORMATION
  Report Type: Report from Study
  Country: US (occurrence: US)
  Receive Date: 20131009
  Receipt Date: 20131022
  Transmission Date: 20140711
  Serious: Yes (Other)
  Sender: FDA-Public Use
  Company Number: PHEH2013US020840

PATIENT
  Age: 81 Year
  Sex: Female
  Weight: 48.73 kg

DRUGS (10)
  1. TASIGNA [Suspect]
     Indication: CHRONIC MYELOID LEUKAEMIA
     Dosage: 400 MG, BID
     Dates: start: 20130904, end: 20130915
  2. ACETAMINOPHEN [Concomitant]
     Dosage: 650 MG, UNK
  3. LORATADINE [Concomitant]
  4. CLONIDINE [Concomitant]
     Dosage: 0.1/24 HOUR
  5. MINOXIDIL [Concomitant]
     Dosage: 2.5 MG, UNK
  6. FELODIPINE [Concomitant]
     Dosage: 10 MG, UNK
  7. BYSTOLIC [Concomitant]
     Dosage: 10 MG, UNK
  8. CHOLECALCIFEROL [Concomitant]
  9. CALCIUM                            /06891901/ [Concomitant]
     Dosage: UNK
  10. HYDROCHLOROTHIAZIDE W/TRIAMTERENE [Concomitant]

REACTIONS (7)
  - Rash [Unknown]
  - Vomiting [Unknown]
  - Dehydration [Unknown]
  - Fatigue [Unknown]
  - Headache [Unknown]
  - Pruritus [Unknown]
  - Aphagia [Unknown]
